FAERS Safety Report 13816031 (Version 1)
Quarter: 2017Q3

REPORT INFORMATION
  Report Type: Spontaneous
  Country: US (occurrence: US)
  Receive Date: 20170731
  Receipt Date: 20170731
  Transmission Date: 20171127
  Serious: Yes (Other)
  Sender: FDA-Public Use
  Company Number: US-SA-2017SA113429

PATIENT
  Age: 51 Year
  Sex: Female
  Weight: 65.77 kg

DRUGS (6)
  1. AMBIEN [Suspect]
     Active Substance: ZOLPIDEM TARTRATE
     Indication: SLEEP DISORDER
     Dosage: MAY BE 5 MG OR 10 MG
     Route: 048
  2. PERCOCET [Concomitant]
     Active Substance: ACETAMINOPHEN\OXYCODONE HYDROCHLORIDE
     Indication: PAIN
     Dosage: TWO TO FOUR TIMES A DAY?STARTED ABOUT 7 MONTHS AGO. DOSE CAPTURED AS PROVIDED BY CALLER
     Route: 065
     Dates: start: 2016
  3. LEXAPRO [Concomitant]
     Active Substance: ESCITALOPRAM OXALATE
     Indication: BRACHIAL PLEXUS INJURY
     Route: 065
  4. LINZESS [Concomitant]
     Active Substance: LINACLOTIDE
     Indication: IRRITABLE BOWEL SYNDROME
     Dosage: SOMETIMES SHE MAY NOT TAKE IT EVERYDAY. STARTED A FEW YEARS AGO.
     Route: 065
  5. NEXIUM [Concomitant]
     Active Substance: ESOMEPRAZOLE MAGNESIUM
     Indication: IRRITABLE BOWEL SYNDROME
     Dosage: STARTED QUITE A FEW YEARS AGO.
     Route: 065
  6. LEXAPRO [Concomitant]
     Active Substance: ESCITALOPRAM OXALATE
     Indication: BRACHIAL PLEXUS INJURY
     Route: 065
     Dates: start: 2016, end: 201705

REACTIONS (11)
  - Mood altered [Recovering/Resolving]
  - Dyspnoea [Not Recovered/Not Resolved]
  - Paranoid personality disorder [Recovered/Resolved]
  - Rash [Not Recovered/Not Resolved]
  - Oedema peripheral [Recovering/Resolving]
  - Nightmare [Recovering/Resolving]
  - Head injury [Unknown]
  - Insomnia [Recovering/Resolving]
  - Syncope [Unknown]
  - Agitation [Recovering/Resolving]
  - Suicidal ideation [Recovered/Resolved]

NARRATIVE: CASE EVENT DATE: 201705
